FAERS Safety Report 4866312-2 (Version None)
Quarter: 2005Q4

REPORT INFORMATION
  Report Type: 
  Country: None (occurrence: None)
  Receive Date: 20051227
  Receipt Date: 20051215
  Transmission Date: 20060501
  Serious: Yes (Hospitalization)
  Sender: FDA-Public Use
  Company Number: FR-SANOFI-SYNTHELABO-A02200503296

PATIENT
  Age: 75 Year
  Sex: Female

DRUGS (10)
  1. STILNOX [Suspect]
     Indication: DRUG USE FOR UNKNOWN INDICATION
     Route: 048
     Dates: end: 20040301
  2. STILNOX [Suspect]
     Route: 048
     Dates: end: 20040301
  3. EQUANIL [Suspect]
     Indication: DRUG USE FOR UNKNOWN INDICATION
     Dosage: 750 MG
     Route: 048
     Dates: end: 20040301
  4. STABLON [Suspect]
     Indication: CONFUSIONAL STATE
     Dosage: 25 MG
     Route: 048
     Dates: end: 20040301
  5. STABLON [Suspect]
     Indication: DEPRESSION
     Dosage: 25 MG
     Route: 048
     Dates: end: 20040301
  6. EXELON [Suspect]
     Indication: DEMENTIA ALZHEIMER'S TYPE
     Dosage: 2 DF
     Route: 048
     Dates: end: 20040301
  7. PERSANTINE [Suspect]
     Indication: DRUG USE FOR UNKNOWN INDICATION
     Dosage: 225 MG
     Route: 048
  8. ISOPTIN [Suspect]
     Indication: OBSTRUCTION GASTRIC
     Dosage: 240 MG
     Route: 048
     Dates: end: 20040301
  9. MOTILIUM [Suspect]
     Indication: NAUSEA
     Dosage: 30 MG
     Route: 048
     Dates: end: 20040301
  10. MOTILIUM [Suspect]
     Indication: VOMITING
     Dosage: 30 MG
     Route: 048
     Dates: end: 20040301

REACTIONS (6)
  - ABDOMINAL PAIN UPPER [None]
  - FOOD INTOLERANCE [None]
  - INTESTINAL OBSTRUCTION [None]
  - NAUSEA [None]
  - PYREXIA [None]
  - VOMITING [None]
